FAERS Safety Report 17593548 (Version 1)
Quarter: 2020Q1

REPORT INFORMATION
  Report Type: Report from Study
  Country: GB (occurrence: GB)
  Receive Date: 20200327
  Receipt Date: 20200327
  Transmission Date: 20200409
  Serious: Yes (Hospitalization, Disabling)
  Sender: FDA-Public Use
  Company Number: GB-MYLANLABS-2020M1032527

PATIENT
  Sex: Female

DRUGS (24)
  1. DOCETAXEL. [Suspect]
     Active Substance: DOCETAXEL
     Dosage: 108 MILLIGRAM, Q3W (MAINTENANCE DOSE)
     Route: 042
     Dates: start: 20151120, end: 20160222
  2. DEXAMETHASONE. [Concomitant]
     Active Substance: DEXAMETHASONE
     Indication: DISEASE PROGRESSION
     Dosage: 2 MILLIGRAM, QD
     Route: 048
     Dates: start: 20170726, end: 20170803
  3. HALOPERIDOL. [Concomitant]
     Active Substance: HALOPERIDOL
     Indication: PALLIATIVE CARE
     Dosage: 1.5 MILLIGRAM (PRN (AS NEEDED))
     Route: 058
     Dates: start: 20170919, end: 20170920
  4. HALOPERIDOL. [Concomitant]
     Active Substance: HALOPERIDOL
     Dosage: 1.5 MILLIGRAM, Q2D
     Route: 048
     Dates: start: 20170810, end: 20170919
  5. LETROZOLE. [Suspect]
     Active Substance: LETROZOLE
     Indication: HER-2 POSITIVE BREAST CANCER
     Dosage: 2.5 MILLIGRAM, QD
     Route: 048
     Dates: start: 20160308, end: 20161123
  6. PERTUZUMAB. [Suspect]
     Active Substance: PERTUZUMAB
     Dosage: 840 MILLIGRAM (LOADING DOSE)
     Route: 042
     Dates: start: 20151023, end: 20151023
  7. FILGRASTIM [Concomitant]
     Active Substance: FILGRASTIM
     Indication: PROPHYLAXIS
     Dosage: 300 MICROGRAM
     Route: 058
     Dates: start: 20151210, end: 20160305
  8. TRASTUZUMAB EMTANSINE [Suspect]
     Active Substance: ADO-TRASTUZUMAB EMTANSINE
     Dosage: 240 MILLIGRAM, Q3W
     Route: 042
     Dates: start: 20161201, end: 20170302
  9. LANSOPRAZOLE. [Concomitant]
     Active Substance: LANSOPRAZOLE
     Indication: PROPHYLAXIS
     Dosage: 30 MILLIGRAM, QD
     Route: 048
     Dates: start: 20170728, end: 20170905
  10. TRASTUZUMAB. [Suspect]
     Active Substance: TRASTUZUMAB
     Indication: HER-2 POSITIVE BREAST CANCER
     Dosage: 400 MILLIGRAM, Q3W (MAINTENANCE DOSE)
     Route: 042
     Dates: start: 20151120, end: 20161104
  11. DEXAMETHASONE. [Concomitant]
     Active Substance: DEXAMETHASONE
     Indication: METASTASES TO CENTRAL NERVOUS SYSTEM
     Dosage: 4 MILLIGRAM, BID (0.5 DAY)
     Route: 048
     Dates: start: 20170809, end: 20170919
  12. TRASTUZUMAB. [Suspect]
     Active Substance: TRASTUZUMAB
     Dosage: 525 MILLIGRAM (LOADING DOSE)
     Route: 042
     Dates: start: 20151023, end: 20151023
  13. HYDROCORTISONE. [Concomitant]
     Active Substance: HYDROCORTISONE
     Indication: PROPHYLAXIS
     Dosage: 100 MILLIGRAM (0.33 WEEK)
     Route: 042
     Dates: start: 20151022, end: 20160222
  14. MORPHINE SULPHATE [Concomitant]
     Active Substance: MORPHINE SULFATE
     Indication: PALLIATIVE CARE
     Dosage: 2.5 MILLIGRAM (PRN (AS NEEDED))
     Route: 058
     Dates: start: 20170918, end: 20170920
  15. DEXAMETHASONE. [Concomitant]
     Active Substance: DEXAMETHASONE
     Dosage: TWICE A DAY FOR 3 DAYS STARTING DAY BEFORE CHEMO
     Route: 048
     Dates: start: 20151210, end: 20160222
  16. PERTUZUMAB. [Suspect]
     Active Substance: PERTUZUMAB
     Indication: HER-2 POSITIVE BREAST CANCER
     Dosage: 420 MILLIGRAM, Q3W (MAINTENANCE DOSE)
     Route: 042
     Dates: start: 20151120, end: 20161104
  17. DOCETAXEL. [Suspect]
     Active Substance: DOCETAXEL
     Indication: HER-2 POSITIVE BREAST CANCER
     Dosage: 132 MILLIGRAM (LOADING DOSE)
     Route: 042
     Dates: start: 20151022, end: 20151022
  18. TRASTUZUMAB EMTANSINE [Suspect]
     Active Substance: ADO-TRASTUZUMAB EMTANSINE
     Indication: HER-2 POSITIVE BREAST CANCER
     Dosage: 200 MILLIGRAM, Q3W
     Route: 042
     Dates: start: 20170330, end: 20170608
  19. ZOLEDRONIC ACID [Concomitant]
     Active Substance: ZOLEDRONIC ACID
     Dosage: 4 MILLIGRAM, MONTHLY
     Route: 042
     Dates: start: 20151022, end: 20170713
  20. FILGRASTIM [Concomitant]
     Active Substance: FILGRASTIM
     Dosage: 300 MICROGRAM, QD (INJECTION)
     Route: 058
     Dates: start: 20151120, end: 20151127
  21. MIDAZOLAM. [Concomitant]
     Active Substance: MIDAZOLAM
     Indication: PALLIATIVE CARE
     Dosage: 2.5 MILLIGRAM (PRN (AS NEEDED))
     Route: 058
     Dates: start: 20170918, end: 20170920
  22. GLYCOPYRRONIUM [Concomitant]
     Active Substance: GLYCOPYRRONIUM
     Indication: PALLIATIVE CARE
     Dosage: 400 MICROGRAM (PRN (AS NEEDED))
     Route: 058
     Dates: start: 20170919, end: 20170920
  23. DEXAMETHASONE. [Concomitant]
     Active Substance: DEXAMETHASONE
     Indication: PROPHYLAXIS
     Dosage: 8 MILLIGRAM, BID (0.5 DAY)
     Route: 048
     Dates: start: 20170803, end: 20170809
  24. CHLORPHENIRAMINE                   /00072501/ [Concomitant]
     Active Substance: CHLORPHENIRAMINE
     Indication: PROPHYLAXIS
     Dosage: 10 MILLIGRAM (0.33 WEEK)
     Route: 042
     Dates: start: 20151022, end: 20160222

REACTIONS (10)
  - Dyschezia [Not Recovered/Not Resolved]
  - Decreased appetite [Recovered/Resolved]
  - Hypocalcaemia [Not Recovered/Not Resolved]
  - Lethargy [Not Recovered/Not Resolved]
  - Nasopharyngitis [Recovered/Resolved]
  - Migraine [Not Recovered/Not Resolved]
  - Oropharyngeal pain [Recovered/Resolved]
  - Depression [Not Recovered/Not Resolved]
  - Abnormal sensation in eye [Recovered/Resolved]
  - Asthenia [Recovered/Resolved]

NARRATIVE: CASE EVENT DATE: 20151229
